FAERS Safety Report 7805279-1 (Version None)
Quarter: 2011Q4

REPORT INFORMATION
  Report Type: 
  Country: None (occurrence: None)
  Receive Date: 20111010
  Receipt Date: 20110930
  Transmission Date: 20120403
  Serious: Yes (Other)
  Sender: FDA-Public Use
  Company Number: US-BAYER-200940896NA

PATIENT
  Age: 85 Year
  Sex: Male
  Weight: 79.1 kg

DRUGS (17)
  1. METOPROLOL TARTRATE [Concomitant]
     Dosage: 50MG HALF TABLET TWICE DAILY
     Route: 048
     Dates: start: 20070319
  2. INSULIN [Concomitant]
     Dosage: UNK
     Route: 042
     Dates: start: 20070612
  3. AMICAR [Concomitant]
     Indication: AORTIC VALVE REPLACEMENT
     Dosage: 40 ML, ONCE, PUMP PRIME DOSE
     Route: 042
     Dates: start: 20070612, end: 20070612
  4. LASIX [Concomitant]
     Dosage: 40MG DAILY
     Route: 048
     Dates: start: 20070319
  5. HYDROCHLOROTHIAZIDE [Concomitant]
     Dosage: 25MG TWICE DAILY
     Route: 048
     Dates: end: 20070323
  6. AMIODARONE HCL [Concomitant]
     Dosage: UNK
     Route: 042
     Dates: start: 20070612, end: 20070612
  7. TRASYLOL [Suspect]
     Indication: AORTIC VALVE REPLACEMENT
     Dosage: UNK
     Route: 042
     Dates: start: 20070612, end: 20070612
  8. ACETYLSALICYLIC ACID SRT [Concomitant]
     Dosage: 81 MG, BID
     Route: 048
     Dates: start: 20030320
  9. SIMVASTATIN [Concomitant]
     Dosage: 10MG DAILY
     Route: 048
  10. LISINOPRIL [Concomitant]
     Dosage: 40MG DAILY
     Route: 048
  11. VERAPAMIL [Concomitant]
     Dosage: 240MG THREE TIMES A DAY
     Route: 048
     Dates: start: 19971027, end: 20070319
  12. TERAZOSIN HCL [Concomitant]
     Dosage: 5MG DAILY
     Route: 048
     Dates: end: 20070319
  13. PROTAMINE [Concomitant]
     Dosage: 350MG
     Route: 042
     Dates: start: 20070612, end: 20070612
  14. AMICAR [Concomitant]
     Dosage: 24 KIU
     Route: 042
     Dates: start: 20070612, end: 20070612
  15. VASOPRESSIN [Concomitant]
     Dosage: UNK
     Route: 042
     Dates: start: 20070612
  16. AMIODARONE HCL [Concomitant]
     Dosage: 200MG TWICE DAILY
     Route: 048
     Dates: start: 20070319
  17. MUCOMYST [Concomitant]
     Dosage: UNK
     Dates: start: 20070404

REACTIONS (11)
  - MULTI-ORGAN FAILURE [None]
  - ANHEDONIA [None]
  - ANXIETY [None]
  - FEAR [None]
  - PAIN [None]
  - RENAL INJURY [None]
  - INJURY [None]
  - RENAL FAILURE [None]
  - UNEVALUABLE EVENT [None]
  - DISABILITY [None]
  - DEPRESSION [None]
